FAERS Safety Report 5846950-0 (Version None)
Quarter: 2008Q3

REPORT INFORMATION
  Report Type: 
  Country: None (occurrence: None)
  Receive Date: 20080815
  Receipt Date: 20080806
  Transmission Date: 20090109
  Serious: Yes (Death)
  Sender: FDA-Public Use
  Company Number: US-ELI_LILLY_AND_COMPANY-US200807005977

PATIENT
  Age: 85 Year
  Sex: Female
  Weight: 29.478 kg

DRUGS (5)
  1. ZYPREXA [Suspect]
     Indication: DECREASED APPETITE
     Dosage: 2.5 MG, UNK
     Dates: start: 20080528
  2. LANOXIN [Concomitant]
     Dosage: 0.125 MG, UNK
  3. LEVBID [Concomitant]
     Dosage: 0.375 MG, 2/D
  4. FOSAMAX [Concomitant]
     Dosage: 70 MG, WEEKLY (1/W)
  5. ASPIRIN [Concomitant]
     Dosage: 81 MG, UNK

REACTIONS (1)
  - CHRONIC OBSTRUCTIVE PULMONARY DISEASE [None]
